FAERS Safety Report 24722173 (Version 1)
Quarter: 2024Q4

REPORT INFORMATION
  Report Type: Spontaneous
  Country: CN (occurrence: CN)
  Receive Date: 20241211
  Receipt Date: 20241211
  Transmission Date: 20250115
  Serious: Yes (Other)
  Sender: SANDOZ
  Company Number: CN-SANDOZ-SDZ2024CN101225

PATIENT
  Age: 58 Year
  Sex: Female
  Weight: 49 kg

DRUGS (1)
  1. ZOLEDRONIC ACID [Suspect]
     Active Substance: ZOLEDRONIC ACID
     Indication: Osteoporosis
     Dosage: 5 MG, QD
     Route: 041
     Dates: start: 20241101, end: 20241101

REACTIONS (7)
  - Abdominal distension [Unknown]
  - Loss of personal independence in daily activities [Unknown]
  - Pyrexia [Not Recovered/Not Resolved]
  - Back pain [Unknown]
  - Asthenia [Recovering/Resolving]
  - Arthralgia [Not Recovered/Not Resolved]
  - Insomnia [Unknown]

NARRATIVE: CASE EVENT DATE: 20241101
